FAERS Safety Report 23927621 (Version 1)
Quarter: 2024Q2

REPORT INFORMATION
  Report Type: Report from Study
  Country: JP (occurrence: JP)
  Receive Date: 20240531
  Receipt Date: 20240531
  Transmission Date: 20240716
  Serious: Yes (Death, Hospitalization, Other)
  Sender: FDA-Public Use
  Company Number: JP-GSKJP-JP2024JPN065916AA

PATIENT

DRUGS (3)
  1. DAPRODUSTAT [Interacting]
     Active Substance: DAPRODUSTAT
     Dosage: 4 MG, 1D
  2. CLOPIDOGREL [Interacting]
     Active Substance: CLOPIDOGREL BISULFATE
     Dosage: 75 MG, 1D
  3. SODIUM FERROUS CITRATE [Concomitant]
     Active Substance: SODIUM FERROUS CITRATE
     Dosage: 100 MG, QD

REACTIONS (10)
  - Pneumonia aspiration [Fatal]
  - Cardio-respiratory arrest [Fatal]
  - Epilepsy [Unknown]
  - Cerebral infarction [Unknown]
  - Cerebral artery stenosis [Unknown]
  - Cerebral arteriosclerosis [Unknown]
  - Hypoxia [Unknown]
  - Pyrexia [Unknown]
  - Haemoglobin increased [Unknown]
  - Potentiating drug interaction [Unknown]
